FAERS Safety Report 7556352-7 (Version None)
Quarter: 2011Q2

REPORT INFORMATION
  Report Type: 
  Country: None (occurrence: None)
  Receive Date: 20110620
  Receipt Date: 20110610
  Transmission Date: 20111010
  Serious: No
  Sender: FDA-Public Use
  Company Number: US-JNJFOC-20110606099

PATIENT
  Sex: Female
  Weight: 103.42 kg

DRUGS (1)
  1. FENTANYL-100 [Suspect]
     Indication: PAIN
     Route: 062
     Dates: start: 20110529

REACTIONS (6)
  - WRONG TECHNIQUE IN DRUG USAGE PROCESS [None]
  - PRODUCT QUALITY ISSUE [None]
  - INCORRECT DOSE ADMINISTERED [None]
  - PAIN [None]
  - ACTIVITIES OF DAILY LIVING IMPAIRED [None]
  - DRUG PRESCRIBING ERROR [None]
